FAERS Safety Report 8227560-7 (Version None)
Quarter: 2012Q1

REPORT INFORMATION
  Report Type: 
  Country: None (occurrence: None)
  Receive Date: 20120322
  Receipt Date: 20120319
  Transmission Date: 20120608
  Serious: Yes (Hospitalization)
  Sender: FDA-Public Use
  Company Number: US-BAYER-201038336NA

PATIENT
  Age: 53 Year
  Sex: Female
  Weight: 60.771 kg

DRUGS (14)
  1. YAZ [Suspect]
     Indication: DYSMENORRHOEA
  2. IMITREX [Concomitant]
     Indication: MIGRAINE
     Dosage: UNK
     Dates: start: 20070101
  3. YAZ [Suspect]
     Indication: ORAL CONTRACEPTION
     Dosage: UNK UNK, UNK
     Route: 048
     Dates: start: 20080201, end: 20081029
  4. YAZ [Suspect]
     Indication: PREMENSTRUAL SYNDROME
  5. ANTICONVULSIVE [Concomitant]
     Dosage: UNK
     Dates: start: 20060101, end: 20080101
  6. SIMVASTATIN [Concomitant]
     Indication: HYPERCHOLESTEROLAEMIA
     Dosage: UNK
     Dates: start: 20080101
  7. VICODIN [Concomitant]
     Indication: MUSCLE SPASMS
  8. ANAPROX [Concomitant]
     Indication: MUSCLE SPASMS
     Dosage: UNK
     Dates: start: 20081025
  9. SKELAXIN [Concomitant]
     Indication: MUSCLE SPASMS
     Dosage: UNK
     Dates: start: 20081025
  10. MULTI-VITAMINS [Concomitant]
     Dosage: UNK
     Dates: start: 19800101
  11. KEPPRA [Concomitant]
     Indication: MIGRAINE
     Dosage: UNK
     Dates: start: 20060101, end: 20100101
  12. ASPIRIN [Concomitant]
  13. LOVENOX [Concomitant]
  14. POTASSIUM [Concomitant]
     Dosage: UNK
     Dates: start: 19800101

REACTIONS (2)
  - DEEP VEIN THROMBOSIS [None]
  - PULMONARY EMBOLISM [None]
